FAERS Safety Report 5353779-9 (Version None)
Quarter: 2007Q2

REPORT INFORMATION
  Report Type: 
  Country: None (occurrence: None)
  Receive Date: 20070608
  Receipt Date: 20070608
  Transmission Date: 20071010
  Serious: Yes (Other)
  Sender: FDA-Public Use
  Company Number: None

PATIENT
  Age: 2 Year
  Sex: Male

DRUGS (2)
  1. COPPERTONE WATER BABIES LOTION (SPF 50) [Suspect]
     Indication: PROPHYLAXIS AGAINST SOLAR RADIATION
     Dosage: ONCE; TOP
     Route: 061
     Dates: start: 20070525, end: 20070525
  2. BENADRYL [Concomitant]

REACTIONS (4)
  - EYE SWELLING [None]
  - LIP SWELLING [None]
  - RESPIRATION ABNORMAL [None]
  - RESPIRATORY DISORDER [None]
